FAERS Safety Report 9767129 (Version 2)
Quarter: 2013Q4

REPORT INFORMATION
  Report Type: Spontaneous
  Country: US (occurrence: US)
  Receive Date: 20131217
  Receipt Date: 20131223
  Transmission Date: 20140711
  Serious: Yes (Other)
  Sender: FDA-Public Use
  Company Number: US-PFIZER INC-2013360692

PATIENT
  Sex: 0

DRUGS (3)
  1. LYRICA [Suspect]
     Dosage: 200 MG, 2X/DAY
  2. HYDROCORTISONE [Interacting]
     Indication: ADDISON^S DISEASE
     Dosage: UNK
  3. PREDNISONE [Interacting]
     Indication: ADDISON^S DISEASE
     Dosage: 10 MG, DAILY

REACTIONS (3)
  - Drug interaction [Unknown]
  - Loss of consciousness [Unknown]
  - Asthenia [Unknown]
